FAERS Safety Report 11047120 (Version 1)
Quarter: 2015Q2

REPORT INFORMATION
  Report Type: Spontaneous
  Country: PT (occurrence: PT)
  Receive Date: 20150420
  Receipt Date: 20150420
  Transmission Date: 20150821
  Serious: Yes (Other)
  Sender: FDA-Public Use
  Company Number: PT-TEVA-554925ISR

PATIENT
  Age: 37 Year
  Sex: Male
  Weight: 83 kg

DRUGS (2)
  1. BRUFEN [Concomitant]
     Active Substance: IBUPROFEN
     Indication: PHARYNGITIS
     Dosage: 1200 MILLIGRAM DAILY;
     Route: 048
     Dates: start: 20150122, end: 20150124
  2. AZITROMICINA RATIOPHARM 500MG [Suspect]
     Active Substance: AZITHROMYCIN DIHYDRATE
     Indication: PHARYNGITIS
     Dosage: 500 MILLIGRAM DAILY;
     Route: 048
     Dates: start: 20150122, end: 20150124

REACTIONS (7)
  - Nausea [Recovering/Resolving]
  - Head discomfort [Recovering/Resolving]
  - Vomiting [Recovering/Resolving]
  - Malaise [Recovering/Resolving]
  - Disturbance in attention [Recovering/Resolving]
  - Gastrointestinal tract irritation [Recovering/Resolving]
  - Impaired work ability [Unknown]

NARRATIVE: CASE EVENT DATE: 20150125
